FAERS Safety Report 10637872 (Version 1)
Quarter: 2014Q4

REPORT INFORMATION
  Report Type: Spontaneous
  Country: US (occurrence: None)
  Receive Date: 20141204
  Receipt Date: 20141204
  Transmission Date: 20150529
  Serious: No
  Sender: FDA-Public Use
  Company Number: None

PATIENT
  Age: 2 Year
  Sex: Male

DRUGS (9)
  1. SUCRALFATE. [Concomitant]
     Active Substance: SUCRALFATE
  2. CEPHALEXIN. [Concomitant]
     Active Substance: CEPHALEXIN
  3. AMOXICILLIN. [Concomitant]
     Active Substance: AMOXICILLIN
  4. CARAFATE [Concomitant]
     Active Substance: SUCRALFATE
  5. ZONISAMIDE. [Concomitant]
     Active Substance: ZONISAMIDE
  6. OXCARBAZEPINE. [Concomitant]
     Active Substance: OXCARBAZEPINE
  7. AFINITOR [Suspect]
     Active Substance: EVEROLIMUS
     Indication: EPILEPSY
     Route: 048
     Dates: start: 20140710
  8. DIAZEPAM. [Concomitant]
     Active Substance: DIAZEPAM
  9. LORAZEPAM. [Concomitant]
     Active Substance: LORAZEPAM

REACTIONS (4)
  - Viral infection [None]
  - Seizure [None]
  - Respiratory tract infection [None]
  - Drug dose omission [None]

NARRATIVE: CASE EVENT DATE: 20141119
